FAERS Safety Report 13853613 (Version 2)
Quarter: 2017Q4

REPORT INFORMATION
  Report Type: Spontaneous
  Country: US (occurrence: US)
  Receive Date: 20170810
  Receipt Date: 20171208
  Transmission Date: 20180320
  Serious: No
  Sender: FDA-Public Use
  Company Number: US-ASTRAZENECA-2017SE78908

PATIENT
  Sex: Female

DRUGS (12)
  1. CRESTOR [Suspect]
     Active Substance: ROSUVASTATIN CALCIUM
     Indication: MYOCARDIAL INFARCTION
     Route: 048
  2. VITAMINE D [Concomitant]
     Dosage: 4000.0MG UNKNOWN
     Route: 065
  3. CRESTOR [Suspect]
     Active Substance: ROSUVASTATIN CALCIUM
     Indication: MYOCARDIAL INFARCTION
     Dosage: GENERIC
     Route: 048
     Dates: start: 2016, end: 2016
  4. ALIEVE [Concomitant]
     Indication: ARTHRITIS
     Dosage: UNKNOWN
     Route: 065
  5. CRESTOR [Suspect]
     Active Substance: ROSUVASTATIN CALCIUM
     Indication: MYOCARDIAL INFARCTION
     Route: 048
  6. AMLODIPINE [Concomitant]
     Active Substance: AMLODIPINE BESYLATE
     Indication: MYOCARDIAL INFARCTION
     Route: 065
  7. LISINOPRIL. [Suspect]
     Active Substance: LISINOPRIL
     Indication: MYOCARDIAL INFARCTION
     Route: 048
  8. CRESTOR [Suspect]
     Active Substance: ROSUVASTATIN CALCIUM
     Indication: MYOCARDIAL INFARCTION
     Route: 048
     Dates: start: 2016
  9. ISOSORBIDE MONONITRATE. [Concomitant]
     Active Substance: ISOSORBIDE MONONITRATE
     Indication: MYOCARDIAL INFARCTION
     Route: 065
  10. 2 BABY ASPIRINS [Concomitant]
     Indication: MYOCARDIAL INFARCTION
     Dosage: DAILY
     Route: 065
  11. METOPROLOL SUCCINATE. [Suspect]
     Active Substance: METOPROLOL SUCCINATE
     Indication: MYOCARDIAL INFARCTION
     Route: 048
  12. CRESTOR GENERIC [Suspect]
     Active Substance: ROSUVASTATIN CALCIUM
     Dosage: GENERIC PRODUCT
     Route: 065

REACTIONS (2)
  - Nightmare [Unknown]
  - Dysphagia [Recovered/Resolved]
